FAERS Safety Report 10663943 (Version 2)
Quarter: 2014Q4

REPORT INFORMATION
  Report Type: Spontaneous
  Country: US (occurrence: US)
  Receive Date: 20141219
  Receipt Date: 20141219
  Transmission Date: 20150529
  Serious: Yes (Hospitalization)
  Sender: FDA-Public Use
  Company Number: US-SUN PHARMACEUTICAL INDUSTRIES LTD-2014SUN02804

PATIENT
  Age: 87 Year
  Sex: Female
  Weight: 86 kg

DRUGS (5)
  1. REVATIO [Concomitant]
     Active Substance: SILDENAFIL CITRATE
  2. TYVASO [Suspect]
     Active Substance: TREPROSTINIL
     Indication: PULMONARY ARTERIAL HYPERTENSION
     Dosage: 6-54 MICROGRAM FOUR TIMES DAILY
     Route: 045
     Dates: start: 20140909, end: 20141117
  3. COUMADIN [Concomitant]
     Active Substance: WARFARIN SODIUM
  4. ALBUTEROL TABLETS, USP 4 MG [Suspect]
     Active Substance: ALBUTEROL
     Indication: PRODUCT USED FOR UNKNOWN INDICATION
     Route: 065
  5. BOSENTAN [Concomitant]
     Active Substance: BOSENTAN\BOSENTAN MONOHYDRATE

REACTIONS (11)
  - Cardiac failure congestive [Unknown]
  - Dizziness [Recovered/Resolved]
  - Tremor [Recovered/Resolved]
  - Renal failure [Unknown]
  - International normalised ratio abnormal [Recovered/Resolved]
  - Bacteraemia [Unknown]
  - Endocarditis [Unknown]
  - Anxiety [Not Recovered/Not Resolved]
  - Cough [Not Recovered/Not Resolved]
  - Malaise [Recovered/Resolved]
  - Haemoglobin decreased [Not Recovered/Not Resolved]

NARRATIVE: CASE EVENT DATE: 201409
